FAERS Safety Report 8421829-9 (Version None)
Quarter: 2012Q2

REPORT INFORMATION
  Report Type: 
  Country: None (occurrence: None)
  Receive Date: 20120605
  Receipt Date: 20120605
  Transmission Date: 20120825
  Serious: Yes (Hospitalization)
  Sender: FDA-Public Use
  Company Number: None

PATIENT
  Sex: Male

DRUGS (1)
  1. ALFUZOSIN HYDROCHLORIDE [Suspect]
     Indication: BENIGN PROSTATIC HYPERPLASIA
     Dosage: 10 MG ONCE A DAY WITH MEAL BY MOUTH
     Route: 048
     Dates: start: 20111025, end: 20120515

REACTIONS (2)
  - ABDOMINAL PAIN UPPER [None]
  - PRODUCT SUBSTITUTION ISSUE [None]
